FAERS Safety Report 7314429-5 (Version None)
Quarter: 2011Q1

REPORT INFORMATION
  Report Type: 
  Country: None (occurrence: None)
  Receive Date: 20110225
  Receipt Date: 20100817
  Transmission Date: 20110831
  Serious: No
  Sender: FDA-Public Use
  Company Number: US-MYLANLABS-2010S1015131

PATIENT
  Age: 45 Year
  Sex: Female

DRUGS (1)
  1. AMNESTEEM [Suspect]
     Indication: KERATOSIS FOLLICULAR
     Dates: end: 20100801

REACTIONS (5)
  - DEPRESSED MOOD [None]
  - NASAL DRYNESS [None]
  - RHINALGIA [None]
  - ARTHRALGIA [None]
  - HEADACHE [None]
